FAERS Safety Report 9605240 (Version 1)
Quarter: 2013Q4

REPORT INFORMATION
  Report Type: Spontaneous
  Country: US (occurrence: US)
  Receive Date: 20131008
  Receipt Date: 20131008
  Transmission Date: 20140711
  Serious: Yes (Other)
  Sender: FDA-Public Use
  Company Number: US-GLAXOSMITHKLINE-A1044368A

PATIENT
  Age: 86 Year
  Sex: Male

DRUGS (10)
  1. VOTRIENT [Suspect]
     Indication: PRODUCT USED FOR UNKNOWN INDICATION
     Dosage: 600MG PER DAY
     Route: 048
     Dates: start: 201305
  2. ACETAMINOPHEN [Concomitant]
  3. ALEVE [Concomitant]
  4. FISH OIL [Concomitant]
  5. HYDROCODONE APAP [Concomitant]
  6. IMODIUM [Concomitant]
  7. LEVOTHYROXINE [Concomitant]
  8. LIPITOR [Concomitant]
  9. NORVASC [Concomitant]
  10. UNIRETIC [Concomitant]

REACTIONS (1)
  - Retinal detachment [Unknown]
